FAERS Safety Report 21244400 (Version 1)
Quarter: 2022Q3

REPORT INFORMATION
  Report Type: Spontaneous
  Country: US (occurrence: US)
  Receive Date: 20220823
  Receipt Date: 20220823
  Transmission Date: 20221027
  Serious: Yes (Other)
  Sender: FDA-Public Use
  Company Number: US-JNJFOC-20220845188

PATIENT
  Age: 70 Year
  Sex: Female
  Weight: 58.6 kg

DRUGS (1)
  1. CARVYKTI [Suspect]
     Active Substance: CILTACABTAGENE AUTOLEUCEL
     Indication: Plasma cell myeloma
     Route: 042
     Dates: start: 20220517, end: 20220517

REACTIONS (8)
  - Cytokine release syndrome [Unknown]
  - Myalgia [Unknown]
  - Fatigue [Unknown]
  - Aspartate aminotransferase increased [Unknown]
  - Blood alkaline phosphatase increased [Unknown]
  - Hypotension [Unknown]
  - Arrhythmia [Unknown]
  - Alanine aminotransferase abnormal [Unknown]

NARRATIVE: CASE EVENT DATE: 20220519
